FAERS Safety Report 10079404 (Version 1)
Quarter: 2014Q2

REPORT INFORMATION
  Report Type: Spontaneous
  Country: US (occurrence: None)
  Receive Date: 20140414
  Receipt Date: 20140414
  Transmission Date: 20141212
  Serious: Yes (Life-Threatening, Hospitalization, Disabling)
  Sender: FDA-Public Use
  Company Number: None

PATIENT
  Age: 34 Year
  Sex: Female
  Weight: 85.73 kg

DRUGS (2)
  1. TRI-PREVIFEM [Suspect]
     Indication: CONTRACEPTION
     Dosage: 1 TAB DAILY, TAKEN BY MOUTH
     Route: 048
  2. TRI-PREVIFEM [Suspect]
     Indication: POLYCYSTIC OVARIES
     Dosage: 1 TAB DAILY, TAKEN BY MOUTH
     Route: 048

REACTIONS (1)
  - Cerebrovascular accident [None]
